FAERS Safety Report 6034121-7 (Version None)
Quarter: 2009Q1

REPORT INFORMATION
  Report Type: 
  Country: None (occurrence: None)
  Receive Date: 20090112
  Receipt Date: 20081212
  Transmission Date: 20090719
  Serious: No
  Sender: FDA-Public Use
  Company Number: US-BAYER-200839473NA

PATIENT
  Age: 55 Year
  Sex: Female
  Weight: 64 kg

DRUGS (1)
  1. CLIMARA PRO [Suspect]
     Indication: MENOPAUSAL SYMPTOMS
     Route: 062
     Dates: start: 20050101

REACTIONS (3)
  - DRUG INEFFECTIVE [None]
  - HOT FLUSH [None]
  - PRODUCT QUALITY ISSUE [None]
